FAERS Safety Report 6701886-8 (Version None)
Quarter: 2010Q2

REPORT INFORMATION
  Report Type: 
  Country: None (occurrence: None)
  Receive Date: 20100429
  Receipt Date: 20100426
  Transmission Date: 20101027
  Serious: Yes (Hospitalization)
  Sender: FDA-Public Use
  Company Number: JP-BAYER-200914161BYL

PATIENT
  Age: 52 Year
  Sex: Male
  Weight: 81 kg

DRUGS (10)
  1. NEXAVAR [Suspect]
     Indication: RENAL CELL CARCINOMA
     Dosage: UNIT DOSE: 200 MG
     Route: 048
     Dates: start: 20090211, end: 20090222
  2. NEXAVAR [Suspect]
     Dosage: UNIT DOSE: 200 MG
     Route: 048
     Dates: start: 20090612, end: 20090722
  3. NEXAVAR [Suspect]
     Dosage: TOTAL DAILY DOSE: 800 MG  UNIT DOSE: 200 MG
     Route: 048
     Dates: start: 20090223, end: 20090423
  4. NEXAVAR [Suspect]
     Dosage: TOTAL DAILY DOSE: 800 MG  UNIT DOSE: 200 MG
     Route: 048
     Dates: start: 20090120, end: 20090203
  5. NEXAVAR [Suspect]
     Dosage: UNIT DOSE: 200 MG
     Route: 048
     Dates: start: 20090927, end: 20091110
  6. INTERFERON ALFA [Suspect]
     Indication: RENAL CELL CARCINOMA
     Route: 042
     Dates: start: 20090109, end: 20090423
  7. INTERFERON ALFA [Suspect]
     Route: 042
     Dates: start: 20090529, end: 20090722
  8. INTERFERON ALFA [Suspect]
     Route: 042
     Dates: start: 20090801, end: 20090915
  9. SUNITINIB MALATE [Concomitant]
     Indication: RENAL CELL CARCINOMA
     Route: 048
     Dates: end: 20090101
  10. SUMIFERON DS [Concomitant]
     Route: 042
     Dates: start: 20090109

REACTIONS (3)
  - HEPATIC FUNCTION ABNORMAL [None]
  - MALAISE [None]
  - PALMAR-PLANTAR ERYTHRODYSAESTHESIA SYNDROME [None]
